FAERS Safety Report 20131831 (Version 1)
Quarter: 2021Q4

REPORT INFORMATION
  Report Type: Spontaneous
  Country: FR (occurrence: FR)
  Receive Date: 20211130
  Receipt Date: 20211130
  Transmission Date: 20220303
  Serious: Yes (Hospitalization)
  Sender: FDA-Public Use
  Company Number: None

PATIENT
  Age: 36 Year
  Sex: Female

DRUGS (1)
  1. OXYCODONE HYDROCHLORIDE [Suspect]
     Active Substance: OXYCODONE HYDROCHLORIDE
     Indication: Product used for unknown indication
     Dosage: UNK
     Route: 042

REACTIONS (9)
  - Endocarditis staphylococcal [Recovered/Resolved]
  - Anaemia of chronic disease [Recovered/Resolved]
  - Embolic stroke [Recovered/Resolved]
  - Cardiac failure [Not Recovered/Not Resolved]
  - Vascular purpura [Recovered/Resolved]
  - Drug abuse [Not Recovered/Not Resolved]
  - Arthritis infective [Recovered/Resolved]
  - Mitral valve incompetence [Not Recovered/Not Resolved]
  - Bacteraemia [Recovered/Resolved]

NARRATIVE: CASE EVENT DATE: 20201103
